FAERS Safety Report 4668152-6 (Version None)
Quarter: 2005Q2

REPORT INFORMATION
  Report Type: 
  Country: None (occurrence: None)
  Receive Date: 20050523
  Receipt Date: 20041129
  Transmission Date: 20051028
  Serious: Yes (Other)
  Sender: FDA-Public Use
  Company Number: PHBS2004US16145

PATIENT
  Age: 65 Year
  Sex: Male

DRUGS (9)
  1. PAMIDRONATE DISODIUM [Suspect]
     Indication: MULTIPLE MYELOMA
     Route: 042
  2. ZOLEDRONIC ACID [Suspect]
     Dosage: 4 MG, QMO
     Route: 042
  3. VINCRISTINE [Concomitant]
     Route: 065
  4. ADRIAMYCIN PFS [Concomitant]
     Route: 065
  5. DECADRON [Concomitant]
  6. MELPHALAN [Concomitant]
  7. THALIDOMIDE [Concomitant]
     Route: 065
  8. ANTIBIOTICS [Suspect]
     Route: 065
  9. AUTOLOGOUS TRANSPLANTATION [Concomitant]

REACTIONS (5)
  - ASEPTIC NECROSIS BONE [None]
  - ENDODONTIC PROCEDURE [None]
  - TOOTH ABSCESS [None]
  - TOOTH EXTRACTION [None]
  - TOOTHACHE [None]
